FAERS Safety Report 16532420 (Version 1)
Quarter: 2019Q3

REPORT INFORMATION
  Report Type: Report from Study
  Country: FR (occurrence: FR)
  Receive Date: 20190705
  Receipt Date: 20190705
  Transmission Date: 20191004
  Serious: Yes (Other)
  Sender: FDA-Public Use
  Company Number: PHHY2016FR137718

PATIENT
  Sex: Female

DRUGS (1)
  1. OMNITROPE [Suspect]
     Active Substance: SOMATROPIN
     Indication: PRADER-WILLI SYNDROME
     Dosage: 0.012 MG/KG, QD
     Route: 058
     Dates: start: 20120425

REACTIONS (7)
  - Hypothyroidism [Not Recovered/Not Resolved]
  - Weight increased [Not Recovered/Not Resolved]
  - Scoliosis [Not Recovered/Not Resolved]
  - Anger [Not Recovered/Not Resolved]
  - Kyphoscoliosis [Recovered/Resolved]
  - Tonsillar hypertrophy [Not Recovered/Not Resolved]
  - Cerumen impaction [Recovered/Resolved]

NARRATIVE: CASE EVENT DATE: 201509
